FAERS Safety Report 25918692 (Version 1)
Quarter: 2025Q4

REPORT INFORMATION
  Report Type: Spontaneous
  Country: US (occurrence: None)
  Receive Date: 20251010
  Receipt Date: 20251010
  Transmission Date: 20260118
  Serious: Yes (Other)
  Sender: FDA-CTU
  Company Number: None

PATIENT
  Age: 65 Year
  Sex: Female

DRUGS (2)
  1. XELJANZ XR [Suspect]
     Active Substance: TOFACITINIB CITRATE
     Dosage: 11 MG ORAL ?
     Route: 048
  2. ENBREL [Suspect]
     Active Substance: ETANERCEPT

REACTIONS (12)
  - Alopecia [None]
  - Madarosis [None]
  - Myxoid cyst [None]
  - Synovial disorder [None]
  - Acne [None]
  - Injection site nerve damage [None]
  - Pain in extremity [None]
  - Candida infection [None]
  - Abdominal discomfort [None]
  - Pain [None]
  - Neuroma [None]
  - Synovial cyst [None]
